FAERS Safety Report 7478469-8 (Version None)
Quarter: 2011Q2

REPORT INFORMATION
  Report Type: 
  Country: None (occurrence: None)
  Receive Date: 20110513
  Receipt Date: 20100630
  Transmission Date: 20111010
  Serious: No
  Sender: FDA-Public Use
  Company Number: US-PFIZER INC-2010073958

PATIENT
  Age: 65 Year
  Sex: Male
  Weight: 82 kg

DRUGS (2)
  1. WARFARIN [Concomitant]
     Indication: FACTOR V LEIDEN MUTATION
     Dosage: 5 MG, 1X/DAY
     Route: 048
  2. CELEBREX [Suspect]
     Indication: CHONDROCALCINOSIS
     Dosage: 400 MG, 1X/DAY
     Route: 048

REACTIONS (1)
  - ROSACEA [None]
